FAERS Safety Report 9669298 (Version 1)
Quarter: 2013Q4

REPORT INFORMATION
  Report Type: Spontaneous
  Country: US (occurrence: None)
  Receive Date: 20131104
  Receipt Date: 20131104
  Transmission Date: 20140711
  Serious: Yes (Other)
  Sender: FDA-Public Use
  Company Number: None

PATIENT
  Age: 8 Year
  Sex: Female
  Weight: 25.4 kg

DRUGS (3)
  1. MIRALAX [Suspect]
     Indication: CONSTIPATION
     Dosage: APPROX 5-6 YEARS, ONCE DAILY, TAKEN BY MOUTH
     Route: 048
  2. MIRALAX [Suspect]
     Indication: ENCOPRESIS
     Dosage: APPROX 5-6 YEARS, ONCE DAILY, TAKEN BY MOUTH
     Route: 048
  3. MIRALAX [Suspect]
     Indication: FAECALOMA
     Dosage: APPROX 5-6 YEARS, ONCE DAILY, TAKEN BY MOUTH
     Route: 048

REACTIONS (2)
  - Obsessive-compulsive disorder [None]
  - Anxiety [None]
